FAERS Safety Report 10017538 (Version 1)
Quarter: 2014Q1

REPORT INFORMATION
  Report Type: Report from Study
  Country: US (occurrence: US)
  Receive Date: 20140318
  Receipt Date: 20140318
  Transmission Date: 20141002
  Serious: Yes (Hospitalization)
  Sender: FDA-Public Use
  Company Number: US-ABBVIE-14P-163-1211494-00

PATIENT
  Age: 50 Year
  Sex: Female
  Weight: 65.83 kg

DRUGS (13)
  1. HUMIRA [Suspect]
     Indication: CROHN^S DISEASE
     Dates: start: 201303, end: 201303
  2. HUMIRA [Suspect]
     Dates: start: 201303, end: 201303
  3. HUMIRA [Suspect]
     Dates: start: 201303, end: 201311
  4. HUMIRA [Suspect]
     Dates: start: 201401, end: 201401
  5. HUMIRA [Suspect]
     Dates: start: 201401, end: 201401
  6. HUMIRA [Suspect]
     Dates: start: 201401
  7. LIALDA [Concomitant]
     Indication: CROHN^S DISEASE
  8. TOPAMAX [Concomitant]
     Indication: MIGRAINE
  9. TOPAMAX [Concomitant]
     Indication: CONVULSION
  10. LEXAPRO [Concomitant]
     Indication: DEPRESSION
  11. NEURONTIN [Concomitant]
     Indication: NEUROPATHY PERIPHERAL
  12. TRAZODONE [Concomitant]
     Indication: INSOMNIA
  13. CRESTOR [Concomitant]
     Indication: BLOOD CHOLESTEROL INCREASED

REACTIONS (8)
  - Uterine haemorrhage [Recovered/Resolved]
  - Uterine cyst [Recovered/Resolved]
  - Diarrhoea [Not Recovered/Not Resolved]
  - Muscle spasms [Not Recovered/Not Resolved]
  - Crohn^s disease [Not Recovered/Not Resolved]
  - Constipation [Not Recovered/Not Resolved]
  - Drug dose omission [Recovered/Resolved]
  - Drug ineffective [Recovered/Resolved]
